APPROVED DRUG PRODUCT: CLOBETASOL PROPIONATE
Active Ingredient: CLOBETASOL PROPIONATE
Strength: 0.05%
Dosage Form/Route: SOLUTION;TOPICAL
Application: A074331 | Product #001
Applicant: COSETTE PHARMACEUTICALS INC
Approved: Dec 15, 1995 | RLD: No | RS: No | Type: DISCN